FAERS Safety Report 4644504-5 (Version None)
Quarter: 2005Q2

REPORT INFORMATION
  Report Type: 
  Country: None (occurrence: None)
  Receive Date: 20050422
  Receipt Date: 20050412
  Transmission Date: 20051028
  Serious: Yes (Other)
  Sender: FDA-Public Use
  Company Number: 200503037

PATIENT
  Age: 34 Year
  Sex: Female

DRUGS (3)
  1. GATIFLOXACIN [Suspect]
     Indication: CONJUNCTIVITIS ALLERGIC
     Dates: start: 20050401, end: 20050401
  2. GATIFLOXACIN [Suspect]
     Indication: TRIGEMINAL NEURALGIA
     Dates: start: 20050401, end: 20050401
  3. FLUMETHOLON [Concomitant]

REACTIONS (5)
  - ANAPHYLACTIC SHOCK [None]
  - CONJUNCTIVAL OEDEMA [None]
  - EYE PAIN [None]
  - EYELID OEDEMA [None]
  - NASAL CONGESTION [None]
